FAERS Safety Report 6410109-9 (Version None)
Quarter: 2009Q4

REPORT INFORMATION
  Report Type: 
  Country: None (occurrence: None)
  Receive Date: 20091022
  Receipt Date: 20091015
  Transmission Date: 20100525
  Serious: Yes (Hospitalization)
  Sender: FDA-Public Use
  Company Number: FR-NOVOPROD-292006

PATIENT
  Age: 85 Year
  Sex: Female
  Weight: 48 kg

DRUGS (13)
  1. NOVONORM [Suspect]
     Indication: DRUG USE FOR UNKNOWN INDICATION
     Dosage: 1 MG, QD
     Route: 048
     Dates: start: 20090703, end: 20090803
  2. NOVONORM [Suspect]
     Dosage: 1 MG, QD
     Route: 048
     Dates: start: 20090806, end: 20090826
  3. MOPRAL                             /00661201/ [Suspect]
     Indication: DRUG USE FOR UNKNOWN INDICATION
     Dosage: 20 MG, QD
     Route: 048
     Dates: start: 20090601
  4. TARDYFERON                         /00023503/ [Suspect]
     Indication: DRUG USE FOR UNKNOWN INDICATION
     Dosage: UNK, UNK
     Dates: start: 20090701
  5. FORLAX [Suspect]
     Indication: DRUG USE FOR UNKNOWN INDICATION
     Route: 048
  6. PARACETAMOL [Suspect]
     Indication: DRUG USE FOR UNKNOWN INDICATION
     Route: 048
  7. PLAVIX [Suspect]
     Indication: DRUG USE FOR UNKNOWN INDICATION
     Dosage: 75 MG, QD
     Route: 048
  8. TRIATEC                            /00885601/ [Suspect]
     Indication: DRUG USE FOR UNKNOWN INDICATION
     Route: 048
  9. LANTUS [Suspect]
     Indication: DRUG USE FOR UNKNOWN INDICATION
     Route: 058
  10. CACIT VITAMINA D3 [Suspect]
     Indication: DRUG USE FOR UNKNOWN INDICATION
  11. CATACOL                            /00394202/ [Concomitant]
  12. MYCOSTER                           /00619301/ [Concomitant]
     Dosage: CREAME
  13. ECONAZOLE NITRATE [Concomitant]
     Dosage: POWDER

REACTIONS (2)
  - CARDIAC FAILURE [None]
  - LUNG DISORDER [None]
